FAERS Safety Report 11820247 (Version 1)
Quarter: 2015Q4

REPORT INFORMATION
  Report Type: Report from Study
  Country: US (occurrence: US)
  Receive Date: 20151210
  Receipt Date: 20151210
  Transmission Date: 20160305
  Serious: Yes (Hospitalization, Other)
  Sender: FDA-Public Use
  Company Number: US-ABBVIE-15K-163-1512535-00

PATIENT
  Age: 38 Year
  Sex: Female
  Weight: 63.11 kg

DRUGS (1)
  1. HUMIRA [Suspect]
     Active Substance: ADALIMUMAB
     Indication: PSORIASIS
     Route: 058
     Dates: start: 2009, end: 2011

REACTIONS (4)
  - Flushing [Unknown]
  - Deafness bilateral [Not Recovered/Not Resolved]
  - Psoriasis [Not Recovered/Not Resolved]
  - Arthritis infective [Recovered/Resolved]

NARRATIVE: CASE EVENT DATE: 201103
